FAERS Safety Report 4809833-0 (Version None)
Quarter: 2005Q4

REPORT INFORMATION
  Report Type: 
  Country: None (occurrence: None)
  Receive Date: 20051026
  Receipt Date: 20051014
  Transmission Date: 20060501
  Serious: Yes (Hospitalization)
  Sender: FDA-Public Use
  Company Number: US-JNJFOC-20051003580

PATIENT
  Sex: Female

DRUGS (2)
  1. REMICADE [Suspect]
     Indication: RHEUMATOID ARTHRITIS
     Dosage: 3-5 MG/KG
     Route: 042
  2. ANTIBIOTICS [Concomitant]
     Route: 048

REACTIONS (2)
  - ARTHRITIS BACTERIAL [None]
  - FASCIITIS [None]
